FAERS Safety Report 7658712-2 (Version None)
Quarter: 2011Q3

REPORT INFORMATION
  Report Type: 
  Country: None (occurrence: None)
  Receive Date: 20110804
  Receipt Date: 20110804
  Transmission Date: 20111222
  Serious: Yes (Hospitalization)
  Sender: FDA-Public Use
  Company Number: None

PATIENT
  Age: 86 Year
  Weight: 62.9 kg

DRUGS (10)
  1. DOCUSATE SODIUM [Concomitant]
  2. FERROUS SULFATE TAB [Concomitant]
  3. RITUXIMAB [Suspect]
     Dosage: 375MG/M2, DAY 1 Q 21 DAY CYCLE 1
     Dates: start: 20110708
  4. ALBUTEROL SULFATE AUTOHALER [Concomitant]
  5. BENDAMUSTINE [Suspect]
     Indication: B-CELL LYMPHOMA
     Dosage: 120MG/M2, DAY 1 + 2 Q21 CYCLE 1
     Dates: start: 20110708
  6. BENDAMUSTINE [Suspect]
     Indication: B-CELL LYMPHOMA
     Dosage: 120MG/M2, DAY 1 + 2 Q21 CYCLE 1
     Dates: start: 20110709
  7. CIPROFLOXACIN [Concomitant]
  8. ACETAMINOPHEN [Concomitant]
  9. ALLOPURINOL [Concomitant]
  10. ENOXPARIN [Concomitant]

REACTIONS (3)
  - BODY TEMPERATURE INCREASED [None]
  - ABSCESS INTESTINAL [None]
  - DEEP VEIN THROMBOSIS [None]
